FAERS Safety Report 24304753 (Version 3)
Quarter: 2025Q3

REPORT INFORMATION
  Report Type: Spontaneous
  Country: JP (occurrence: JP)
  Receive Date: 20240910
  Receipt Date: 20250723
  Transmission Date: 20251021
  Serious: Yes (Hospitalization, Other)
  Sender: NOVARTIS
  Company Number: JP-002147023-NVSJ2024JP010729

PATIENT
  Age: 54 Year
  Sex: Male

DRUGS (8)
  1. LUTATHERA [Suspect]
     Active Substance: LUTETIUM OXODOTREOTIDE LU-177
     Indication: Pancreatic neuroendocrine tumour metastatic
     Route: 041
     Dates: start: 20240215
  2. LUTATHERA [Suspect]
     Active Substance: LUTETIUM OXODOTREOTIDE LU-177
     Route: 041
  3. LUTATHERA [Suspect]
     Active Substance: LUTETIUM OXODOTREOTIDE LU-177
     Route: 041
  4. LUTATHERA [Suspect]
     Active Substance: LUTETIUM OXODOTREOTIDE LU-177
     Route: 041
     Dates: start: 20240801, end: 20240801
  5. ARGININE\LYSINE [Concomitant]
     Active Substance: ARGININE\LYSINE
     Indication: Product used for unknown indication
     Route: 041
     Dates: start: 20240215
  6. ARGININE\LYSINE [Concomitant]
     Active Substance: ARGININE\LYSINE
     Route: 041
  7. ARGININE\LYSINE [Concomitant]
     Active Substance: ARGININE\LYSINE
     Route: 041
  8. ARGININE\LYSINE [Concomitant]
     Active Substance: ARGININE\LYSINE
     Route: 041
     Dates: start: 20240801, end: 20240801

REACTIONS (5)
  - Ulcer haemorrhage [Recovered/Resolved]
  - Aneurysm ruptured [Recovered/Resolved]
  - Pancreatic neuroendocrine tumour metastatic [Unknown]
  - Malignant neoplasm progression [Unknown]
  - Decreased appetite [Recovered/Resolved]

NARRATIVE: CASE EVENT DATE: 20240808
